FAERS Safety Report 8877493 (Version 1)
Quarter: 2012Q4

REPORT INFORMATION
  Report Type: Spontaneous
  Country: US (occurrence: None)
  Receive Date: 20121026
  Receipt Date: 20121026
  Transmission Date: 20130627
  Serious: Yes (Hospitalization, Other)
  Sender: FDA-Public Use
  Company Number: 2012P1060908

PATIENT
  Sex: Male

DRUGS (6)
  1. FENTANYL PATCH [Suspect]
     Indication: PAIN
     Dosage: 1 patch; q72h; tder
     Route: 062
     Dates: start: 201205, end: 20120920
  2. FENTANYL PATCH [Suspect]
     Indication: ANAL FISTULA
     Dosage: 1 patch; q72h; tder
     Route: 062
     Dates: start: 201205, end: 20120920
  3. FENTANYL PATCH [Suspect]
     Indication: PAIN
     Dosage: 1 patch; tder
     Route: 062
     Dates: start: 201209, end: 20121003
  4. FENTANYL PATCH [Suspect]
     Indication: ANAL FISTULA
     Dosage: 1 patch; tder
     Route: 062
     Dates: start: 201209, end: 20121003
  5. DILAUDID [Suspect]
     Indication: PAIN
     Dosage: 4 mg; q3h prn; po
     Route: 048
     Dates: start: 20121003
  6. DILAUDID [Suspect]
     Indication: ANAL FISTULA
     Dosage: 4 mg; q3h prn; po
     Route: 048
     Dates: start: 20121003

REACTIONS (6)
  - Anal abscess [None]
  - Drug effect decreased [None]
  - Nausea [None]
  - Vomiting [None]
  - Somnolence [None]
  - Product substitution issue [None]
